FAERS Safety Report 23335004 (Version 3)
Quarter: 2024Q1

REPORT INFORMATION
  Report Type: Report from Study
  Country: JP (occurrence: JP)
  Receive Date: 20231225
  Receipt Date: 20240125
  Transmission Date: 20240409
  Serious: Yes (Other)
  Sender: FDA-Public Use
  Company Number: JP-TAKEDA-2023TUS003988

PATIENT
  Age: 9 Year
  Sex: Male

DRUGS (8)
  1. LISDEXAMFETAMINE DIMESYLATE [Suspect]
     Active Substance: LISDEXAMFETAMINE DIMESYLATE
     Indication: Attention deficit hyperactivity disorder
     Dosage: 20 MILLIGRAM, QD
     Route: 048
     Dates: start: 20211217
  2. ABILIFY [Concomitant]
     Active Substance: ARIPIPRAZOLE
     Dosage: 4 MILLIGRAM
     Route: 065
     Dates: end: 20221016
  3. ABILIFY [Concomitant]
     Active Substance: ARIPIPRAZOLE
     Dosage: 6 MILLIGRAM
     Route: 065
     Dates: start: 20221017
  4. BELSOMRA [Concomitant]
     Active Substance: SUVOREXANT
     Dosage: 20 MILLIGRAM
     Route: 065
     Dates: end: 20220515
  5. BELSOMRA [Concomitant]
     Active Substance: SUVOREXANT
     Dosage: 10 MILLIGRAM
     Route: 065
     Dates: start: 20220516
  6. CATAPRES [Concomitant]
     Active Substance: CLONIDINE HYDROCHLORIDE
     Indication: Insomnia
     Dosage: 112.5 MICROGRAM
     Route: 065
  7. MELATOBEL [Concomitant]
     Dosage: 3 MILLIGRAM
     Route: 065
     Dates: end: 20221016
  8. MELATOBEL [Concomitant]
     Dosage: 4 MILLIGRAM
     Route: 065
     Dates: start: 20221017

REACTIONS (2)
  - Autism spectrum disorder [Recovering/Resolving]
  - Insomnia [Recovering/Resolving]

NARRATIVE: CASE EVENT DATE: 20221001
